FAERS Safety Report 5202952-9 (Version None)
Quarter: 2006Q4

REPORT INFORMATION
  Report Type: 
  Country: None (occurrence: None)
  Receive Date: 20061018
  Receipt Date: 20060104
  Transmission Date: 20070319
  Serious: Yes (Other)
  Sender: FDA-Public Use
  Company Number: PHEH2005US12391

PATIENT
  Age: 90 Year
  Sex: Male
  Weight: 94.8 kg

DRUGS (19)
  1. ZOMETA [Suspect]
     Indication: METASTASES TO BONE
     Dosage: 4MG QMO, INTRAVENOUS
     Route: 042
     Dates: start: 20051028
  2. LUPRON [Concomitant]
  3. AMITRIPTYLINE HCL [Concomitant]
  4. CASODEX [Concomitant]
  5. VITAMIN B12 [Concomitant]
  6. FERROUS SULFATE TAB [Concomitant]
  7. INSULIN [Concomitant]
  8. AMARYL [Concomitant]
  9. ACTOS /USA/(PIOGLITAZONE, PIOGLITAZONE HYDROCHLORIDE) [Concomitant]
  10. SYNTHROID [Concomitant]
  11. TRIAMTERENE AND HYDROCHLOROTHIAZID ^HARRIS^ (HYDROCHLOROTHIAZIDE, TRIA [Concomitant]
  12. RESERPINE [Concomitant]
  13. VITAMIN E [Concomitant]
  14. FIBERCON (POLYCARBOPHIL CALCIUM) [Concomitant]
  15. FIBERALL (PSYLLIUM HYDROPHILIC MUCILLOID) [Concomitant]
  16. VITAMINS NOS (VITAMINS NOS) [Concomitant]
  17. ASPIRIN [Concomitant]
  18. FISH OIL (FISH OIL) [Concomitant]
  19. PRED FORTE [Concomitant]

REACTIONS (5)
  - CONJUNCTIVITIS [None]
  - IRIDOCYCLITIS [None]
  - OCULAR HYPERAEMIA [None]
  - VISION BLURRED [None]
  - VITREOUS FLOATERS [None]
